FAERS Safety Report 5125055-0 (Version None)
Quarter: 2006Q4

REPORT INFORMATION
  Report Type: 
  Country: None (occurrence: None)
  Receive Date: 20061011
  Receipt Date: 20060109
  Transmission Date: 20070319
  Serious: Yes (Other)
  Sender: FDA-Public Use
  Company Number: GB-GILEAD-2006-0009085

PATIENT
  Sex: Male

DRUGS (2)
  1. TRUVADA [Suspect]
     Indication: HIV INFECTION
     Route: 048
     Dates: start: 20051116, end: 20051121
  2. LOPINAVIR [Suspect]
     Indication: HIV INFECTION
     Route: 048
     Dates: start: 20051116, end: 20051121

REACTIONS (1)
  - THROMBOCYTOPENIA [None]
